FAERS Safety Report 5585332-6 (Version None)
Quarter: 2008Q1

REPORT INFORMATION
  Report Type: 
  Country: None (occurrence: None)
  Receive Date: 20080104
  Receipt Date: 20080104
  Transmission Date: 20080703
  Serious: No
  Sender: FDA-Public Use
  Company Number: None

PATIENT
  Age: 49 Year
  Sex: Male

DRUGS (9)
  1. TENOFOVIR [Suspect]
  2. ATORVASTATIN [Concomitant]
  3. CALCIUM GLUCONATE [Concomitant]
  4. CLOTRIMAZOLE (TROCHE) [Concomitant]
  5. ENFUVIRIDE [Concomitant]
  6. POTASSIUM CITRATE COMBINATIONS [Concomitant]
  7. PSYLLIUM [Concomitant]
  8. TIPRANAVIR [Concomitant]
  9. RITONAVIR [Concomitant]

REACTIONS (3)
  - ANKLE FRACTURE [None]
  - BONE DISORDER [None]
  - HYPOPHOSPHATAEMIA [None]
